FAERS Safety Report 8131482-X (Version None)
Quarter: 2012Q1

REPORT INFORMATION
  Report Type: 
  Country: None (occurrence: None)
  Receive Date: 20120213
  Receipt Date: 20120204
  Transmission Date: 20120608
  Serious: Yes (Life-Threatening, Hospitalization)
  Sender: FDA-Public Use
  Company Number: US-BAYER-2011-097578

PATIENT
  Age: 46 Year
  Sex: Female
  Weight: 63.492 kg

DRUGS (2)
  1. YASMIN [Suspect]
     Indication: CONTRACEPTION
     Dosage: UNK
     Dates: start: 20100201, end: 20100501
  2. CRANBERRY [Concomitant]
     Indication: PROPHYLAXIS URINARY TRACT INFECTION
     Dosage: UNK UNK, QD
     Dates: start: 20100520

REACTIONS (6)
  - INJURY [None]
  - PULMONARY EMBOLISM [None]
  - ANXIETY [None]
  - DEEP VEIN THROMBOSIS [None]
  - PAIN [None]
  - ANHEDONIA [None]
